FAERS Safety Report 9124759 (Version 1)
Quarter: 2013Q1

REPORT INFORMATION
  Report Type: Spontaneous
  Country: ES (occurrence: ES)
  Receive Date: 20130116
  Receipt Date: 20130116
  Transmission Date: 20140127
  Serious: Yes (Hospitalization, Other)
  Sender: FDA-Public Use
  Company Number: PHHY2013ES002456

PATIENT
  Age: 65 Year
  Sex: Female

DRUGS (1)
  1. IMATINIB [Suspect]
     Indication: GASTROINTESTINAL STROMAL TUMOUR
     Dosage: 400 MG, UNK
     Dates: start: 200912

REACTIONS (6)
  - Vitamin B12 deficiency [Unknown]
  - Anaemia [Unknown]
  - Angina pectoris [Unknown]
  - Cardiac disorder [Unknown]
  - Periorbital oedema [Unknown]
  - Fatigue [Recovered/Resolved]
